FAERS Safety Report 6497989-6 (Version None)
Quarter: 2009Q4

REPORT INFORMATION
  Report Type: 
  Country: None (occurrence: None)
  Receive Date: 20091215
  Receipt Date: 20091202
  Transmission Date: 20100525
  Serious: Yes (Hospitalization)
  Sender: FDA-Public Use
  Company Number: PHHY2009IE34492

PATIENT
  Sex: Male

DRUGS (5)
  1. CLOZARIL [Suspect]
     Indication: SCHIZOPHRENIA
     Dosage: DOSE 100MG MANE, 400MG NOCTE
     Route: 048
     Dates: start: 20060119
  2. CITALOPRAM HYDROBROMIDE [Concomitant]
     Indication: SCHIZOPHRENIA
     Dosage: 40 MG DAILY
     Route: 048
  3. CITALOPRAM HYDROBROMIDE [Concomitant]
     Indication: DEPRESSION
  4. NEXIUM [Concomitant]
     Indication: GASTROOESOPHAGEAL REFLUX DISEASE
     Dosage: 20 MG DAILY
     Route: 048
  5. PALIPERIDONE [Concomitant]
     Indication: SCHIZOPHRENIA
     Dosage: 12 MG DAILY
     Route: 048

REACTIONS (6)
  - DRUG DOSE OMISSION [None]
  - HAEMOGLOBIN DECREASED [None]
  - INFLUENZA [None]
  - NEUTROPHIL COUNT INCREASED [None]
  - PYREXIA [None]
  - WHITE BLOOD CELL COUNT INCREASED [None]
